FAERS Safety Report 10221697 (Version 2)
Quarter: 2014Q2

REPORT INFORMATION
  Report Type: Spontaneous
  Country: US (occurrence: US)
  Receive Date: 20140606
  Receipt Date: 20140630
  Transmission Date: 20141212
  Serious: No
  Sender: FDA-Public Use
  Company Number: US-PFIZER INC-2014151921

PATIENT
  Age: 72 Year
  Sex: Female
  Weight: 90.7 kg

DRUGS (5)
  1. LIPITOR [Suspect]
     Indication: BLOOD CHOLESTEROL INCREASED
     Dosage: 10 MG, 1X/DAY
     Route: 048
     Dates: end: 201308
  2. ASPIRIN [Concomitant]
     Dosage: 81 MG, UNK
  3. POTASSIUM [Concomitant]
     Dosage: 20 KBQ, 1X/DAY
  4. LISINOPRIL [Concomitant]
     Dosage: 10 MG, 2X/DAY
  5. CALAN - SLOW RELEASE [Concomitant]
     Dosage: UNK

REACTIONS (3)
  - Myalgia [Recovering/Resolving]
  - Rash generalised [Recovering/Resolving]
  - Lichen planus [Recovering/Resolving]
